FAERS Safety Report 6684200-6 (Version None)
Quarter: 2010Q2

REPORT INFORMATION
  Report Type: 
  Country: None (occurrence: None)
  Receive Date: 20100416
  Receipt Date: 20100407
  Transmission Date: 20101027
  Serious: Yes (Hospitalization)
  Sender: FDA-Public Use
  Company Number: DE-ABBOTT-10P-062-0637332-00

PATIENT
  Sex: Male

DRUGS (1)
  1. HUMIRA [Suspect]
     Indication: PSORIATIC ARTHROPATHY
     Route: 058
     Dates: start: 20100119, end: 20100216

REACTIONS (3)
  - ABDOMINAL ABSCESS [None]
  - INTERVERTEBRAL DISC DISORDER [None]
  - INTRASPINAL ABSCESS [None]
